FAERS Safety Report 15690107 (Version 1)
Quarter: 2018Q4

REPORT INFORMATION
  Report Type: Spontaneous
  Country: US (occurrence: US)
  Receive Date: 20181205
  Receipt Date: 20181205
  Transmission Date: 20190205
  Serious: Yes (Hospitalization, Other)
  Sender: FDA-Public Use
  Company Number: US-HIKMA PHARMACEUTICALS USA INC.-US-H14001-18-08562

PATIENT
  Age: 48 Year
  Sex: Male

DRUGS (2)
  1. AMPHETAMINE, DEXTROAMPHETAMINE [Interacting]
     Active Substance: AMPHETAMINE\DEXTROAMPHETAMINE
     Indication: PERFORMANCE ENHANCING PRODUCT USE
     Route: 065
  2. TESTOSTERONE. [Suspect]
     Active Substance: TESTOSTERONE
     Indication: PERFORMANCE ENHANCING PRODUCT USE
     Route: 065

REACTIONS (3)
  - Food interaction [Recovered/Resolved]
  - Psychotic disorder [Recovered/Resolved]
  - Intentional product misuse [Recovered/Resolved]
